FAERS Safety Report 15856056 (Version 1)
Quarter: 2019Q1

REPORT INFORMATION
  Report Type: Spontaneous
  Country: FR (occurrence: FR)
  Receive Date: 20190123
  Receipt Date: 20190123
  Transmission Date: 20190417
  Serious: Yes (Hospitalization)
  Sender: FDA-Public Use
  Company Number: FR-ROCHE-2250449

PATIENT
  Age: 57 Year
  Sex: Male

DRUGS (2)
  1. RITUXIMAB. [Suspect]
     Active Substance: RITUXIMAB
     Indication: GRANULOMATOSIS WITH POLYANGIITIS
     Dosage: DATE OIF MOST RECENT DOSE: 03/APR/2018
     Route: 042
  2. ENDOXAN [Suspect]
     Active Substance: CYCLOPHOSPHAMIDE
     Indication: GRANULOMATOSIS WITH POLYANGIITIS
     Dosage: DATE OF MOST RECENT DOSE: 12/OCT/2018
     Route: 065
     Dates: start: 20180525

REACTIONS (1)
  - Malignant hypertension [Not Recovered/Not Resolved]

NARRATIVE: CASE EVENT DATE: 20181108
